FAERS Safety Report 5269257-1 (Version None)
Quarter: 2007Q1

REPORT INFORMATION
  Report Type: 
  Country: None (occurrence: None)
  Receive Date: 20070319
  Receipt Date: 20070309
  Transmission Date: 20070707
  Serious: Yes (Other)
  Sender: FDA-Public Use
  Company Number: US-PFIZER INC-2006027325

PATIENT
  Sex: Female
  Weight: 104.3 kg

DRUGS (6)
  1. BEXTRA [Suspect]
     Indication: ARTHRALGIA
     Route: 048
     Dates: start: 20030411, end: 20050201
  2. EFFEXOR [Concomitant]
  3. CLONAZEPAM [Concomitant]
  4. PREVACID [Concomitant]
  5. TRAMADOL HCL [Concomitant]
  6. DEPO-PROVERA [Concomitant]

REACTIONS (2)
  - DERMATITIS [None]
  - STEVENS-JOHNSON SYNDROME [None]
